FAERS Safety Report 12173531 (Version 1)
Quarter: 2016Q1

REPORT INFORMATION
  Report Type: Spontaneous
  Country: ES (occurrence: ES)
  Receive Date: 20160311
  Receipt Date: 20160311
  Transmission Date: 20160526
  Serious: Yes (Life-Threatening, Hospitalization)
  Sender: FDA-Public Use
  Company Number: ES-ASTRAZENECA-2016SE27246

PATIENT
  Age: 65 Year
  Sex: Female

DRUGS (6)
  1. HALOPERIDOL. [Interacting]
     Active Substance: HALOPERIDOL
     Indication: RESTLESSNESS
     Dosage: TWO TIMES A DAY
     Route: 030
     Dates: start: 20160215, end: 20160215
  2. SEROQUEL XR [Suspect]
     Active Substance: QUETIAPINE FUMARATE
     Indication: BIPOLAR DISORDER
     Route: 048
     Dates: end: 20160208
  3. SEROQUEL XR [Interacting]
     Active Substance: QUETIAPINE FUMARATE
     Indication: BIPOLAR DISORDER
     Route: 048
     Dates: start: 20160209, end: 20160218
  4. RIVOTRIL [Concomitant]
     Active Substance: CLONAZEPAM
     Indication: RESTLESSNESS
     Route: 030
     Dates: start: 20160215, end: 20160215
  5. PAROXETINE [Interacting]
     Active Substance: PAROXETINE\PAROXETINE HYDROCHLORIDE
     Route: 048
     Dates: end: 20160216
  6. PLENUR MODIFIED RELEASED TABLETS, 100 TABLETS (LITHIUM CARBONATE) [Interacting]
     Active Substance: LITHIUM CARBONATE
     Indication: BIPOLAR DISORDER
     Route: 048
     Dates: end: 20160218

REACTIONS (9)
  - Cystitis [Unknown]
  - Anxiety [Unknown]
  - Drug interaction [Unknown]
  - Depressed level of consciousness [Unknown]
  - Disorientation [Unknown]
  - Abnormal behaviour [Unknown]
  - Insomnia [Unknown]
  - Restlessness [Unknown]
  - Neuroleptic malignant syndrome [Recovering/Resolving]

NARRATIVE: CASE EVENT DATE: 20160215
